FAERS Safety Report 9234222 (Version 3)
Quarter: 2013Q2

REPORT INFORMATION
  Report Type: Spontaneous
  Country: BR (occurrence: BR)
  Receive Date: 20130416
  Receipt Date: 20130515
  Transmission Date: 20140414
  Serious: No
  Sender: FDA-Public Use
  Company Number: PHHY2013BR036802

PATIENT
  Sex: Female
  Weight: 90 kg

DRUGS (5)
  1. RITALIN LA [Suspect]
     Indication: ATTENTION DEFICIT/HYPERACTIVITY DISORDER
     Dosage: ONE CAPSULE DAILY
     Route: 048
     Dates: start: 2009
  2. RITALINA [Suspect]
     Dosage: UNK UKN, UNK
     Dates: start: 2009
  3. PURAN T4 [Concomitant]
     Indication: HYPOTHYROIDISM
     Dosage: 1 DF, DAILY
     Route: 048
  4. CYMBALTA [Concomitant]
     Indication: BIPOLAR DISORDER
     Dosage: 60 MG, DAILY
     Route: 048
  5. INVEGA//PALIPERIDONE PALMITATE [Concomitant]
     Indication: BIPOLAR DISORDER
     Dosage: 6 MG, DAILY
     Route: 048

REACTIONS (10)
  - Malabsorption [Unknown]
  - Fear [Unknown]
  - Reading disorder [Not Recovered/Not Resolved]
  - Drug withdrawal syndrome [Recovered/Resolved]
  - Dyspepsia [Recovered/Resolved]
  - Attention deficit/hyperactivity disorder [Unknown]
  - Disturbance in attention [Not Recovered/Not Resolved]
  - Asthenia [Not Recovered/Not Resolved]
  - Drug ineffective [Unknown]
  - Agitation [Not Recovered/Not Resolved]
